FAERS Safety Report 20049902 (Version 1)
Quarter: 2021Q4

REPORT INFORMATION
  Report Type: Spontaneous
  Country: US (occurrence: US)
  Receive Date: 20211109
  Receipt Date: 20211109
  Transmission Date: 20220303
  Serious: Yes (Hospitalization, Disabling, Congenital Anomaly, Other)
  Sender: FDA-Public Use
  Company Number: US-LUPIN PHARMACEUTICALS INC.-2021-21607

PATIENT
  Age: 5 Month
  Sex: Male

DRUGS (1)
  1. LEVOTHYROXINE [Suspect]
     Active Substance: LEVOTHYROXINE
     Indication: Hypothyroidism
     Dosage: UNK
     Route: 064

REACTIONS (18)
  - Basedow^s disease [Recovered/Resolved]
  - Microcephaly [Unknown]
  - Skull malformation [Unknown]
  - Lid sulcus deepened [Unknown]
  - Corneal opacity [Unknown]
  - Congenital eyelid malformation [Unknown]
  - Retrognathia [Unknown]
  - Micropenis [Unknown]
  - Delayed myelination [Unknown]
  - Polymicrogyria [Unknown]
  - Dysmorphism [Unknown]
  - Atrial septal defect [Unknown]
  - Patent ductus arteriosus [Unknown]
  - Hypotonia neonatal [Unknown]
  - Hypertonia neonatal [Unknown]
  - Small for dates baby [Unknown]
  - Premature baby [Unknown]
  - Foetal exposure during pregnancy [Unknown]
